FAERS Safety Report 8994806 (Version 1)
Quarter: 2012Q4

REPORT INFORMATION
  Report Type: Spontaneous
  Country: US (occurrence: None)
  Receive Date: 20121228
  Receipt Date: 20121228
  Transmission Date: 20130627
  Serious: Yes (Disabling)
  Sender: FDA-Public Use
  Company Number: None

PATIENT
  Age: 46 Year
  Sex: Female
  Weight: 61.24 kg

DRUGS (2)
  1. HYDROXYCHLOROQUINE [Suspect]
     Indication: SJOGREN^S SYNDROME
     Dosage: 200 MG 2X A Day Oral
     Route: 048
     Dates: start: 20120913, end: 20120919
  2. HYDROXYCHLOROQUINE [Suspect]
     Indication: SJOGREN^S SYNDROME
     Dates: start: 20120920, end: 20120925

REACTIONS (2)
  - Dyspnoea [None]
  - Asthma [None]
